FAERS Safety Report 4674546-5 (Version None)
Quarter: 2005Q2

REPORT INFORMATION
  Report Type: 
  Country: None (occurrence: None)
  Receive Date: 20050526
  Receipt Date: 20050415
  Transmission Date: 20051028
  Serious: Yes (Life-Threatening)
  Sender: FDA-Public Use
  Company Number: US-MERCK-0504USA02680

PATIENT
  Age: 60 Year
  Sex: Female

DRUGS (2)
  1. VIOXX [Suspect]
     Indication: PAIN
     Route: 048
     Dates: start: 20030601, end: 20030701
  2. VIOXX [Suspect]
     Indication: SURGERY
     Route: 048
     Dates: start: 20030601, end: 20030701

REACTIONS (1)
  - ULCER HAEMORRHAGE [None]
